FAERS Safety Report 6639492-6 (Version None)
Quarter: 2010Q1

REPORT INFORMATION
  Report Type: 
  Country: None (occurrence: None)
  Receive Date: 20100318
  Receipt Date: 20100308
  Transmission Date: 20100710
  Serious: Yes (Life-Threatening, Hospitalization)
  Sender: FDA-Public Use
  Company Number: DE-JNJFOC-20100302673

PATIENT
  Age: 79 Year
  Sex: Female
  Weight: 81 kg

DRUGS (7)
  1. IBUPROFEN [Suspect]
     Indication: RIB FRACTURE
     Route: 048
  2. IBUPROFEN [Suspect]
     Route: 048
  3. AMIODARONE HCL [Concomitant]
     Indication: TACHYARRHYTHMIA
     Route: 048
  4. ASPIRIN [Concomitant]
     Indication: CORONARY ARTERY DISEASE
     Route: 048
  5. BISOPROLOL [Concomitant]
     Indication: CORONARY ARTERY DISEASE
     Route: 048
  6. ENALAPRIL MALEATE [Concomitant]
     Indication: HYPERTENSION
     Route: 048
  7. HYDROCHLOROTHIAZIDE [Concomitant]
     Indication: HYPERTENSION
     Route: 048

REACTIONS (1)
  - RENAL FAILURE ACUTE [None]
